FAERS Safety Report 4930742-0 (Version None)
Quarter: 2006Q1

REPORT INFORMATION
  Report Type: 
  Country: None (occurrence: None)
  Receive Date: 20060227
  Receipt Date: 20051110
  Transmission Date: 20060701
  Serious: Yes (Other)
  Sender: FDA-Public Use
  Company Number: 2006022205

PATIENT
  Sex: Male

DRUGS (1)
  1. BEXTRA [Suspect]
     Indication: ILL-DEFINED DISORDER
     Dosage: (10 MG)

REACTIONS (5)
  - DERMATITIS [None]
  - ECZEMA [None]
  - SKIN LESION [None]
  - SKIN PAPILLOMA [None]
  - STEVENS-JOHNSON SYNDROME [None]
